FAERS Safety Report 7536835-6 (Version None)
Quarter: 2011Q2

REPORT INFORMATION
  Report Type: 
  Country: None (occurrence: None)
  Receive Date: 20110609
  Receipt Date: 20110601
  Transmission Date: 20111010
  Serious: Yes (Other)
  Sender: FDA-Public Use
  Company Number: US-ROCHE-780527

PATIENT
  Sex: Female

DRUGS (4)
  1. RIBAVIRIN [Suspect]
     Route: 065
     Dates: start: 20110518
  2. PEGINTERFERON ALFA-2A [Suspect]
     Indication: HEPATITIS C
     Route: 065
  3. COPEGUS [Suspect]
     Indication: HEPATITIS C
     Route: 065
  4. RIBAVIRIN [Suspect]
     Indication: HEPATITIS C
     Route: 065

REACTIONS (14)
  - MYALGIA [None]
  - MUSCLE TWITCHING [None]
  - THERAPEUTIC PRODUCT INEFFECTIVE [None]
  - CONVULSION [None]
  - MULTIPLE SCLEROSIS [None]
  - CONDITION AGGRAVATED [None]
  - DRY MOUTH [None]
  - ANAEMIA [None]
  - PYREXIA [None]
  - FEELING COLD [None]
  - FEAR [None]
  - ASTHENIA [None]
  - TREMOR [None]
  - HEADACHE [None]
